FAERS Safety Report 7894406-6 (Version None)
Quarter: 2011Q4

REPORT INFORMATION
  Report Type: 
  Country: None (occurrence: None)
  Receive Date: 20111104
  Receipt Date: 20111026
  Transmission Date: 20120403
  Serious: Yes (Hospitalization)
  Sender: FDA-Public Use
  Company Number: JP-ASTRAZENECA-2011SE63956

PATIENT
  Age: 82 Year
  Sex: Female
  Weight: 54 kg

DRUGS (9)
  1. DOXAZOSIN MESYLATE [Concomitant]
     Route: 048
  2. ALLOPURINOL [Concomitant]
     Route: 048
  3. CRESTOR [Suspect]
     Route: 048
     Dates: end: 20110815
  4. CRESTOR [Suspect]
     Route: 048
     Dates: start: 20110815, end: 20110927
  5. AMLODIPINE [Concomitant]
     Route: 048
  6. DIART [Concomitant]
     Route: 048
  7. CRESTOR [Suspect]
     Route: 048
     Dates: start: 20110101, end: 20110101
  8. LENDORMIN D [Concomitant]
     Route: 048
  9. CRESTOR [Suspect]
     Route: 048
     Dates: start: 20110815, end: 20111016

REACTIONS (1)
  - DIARRHOEA [None]
